FAERS Safety Report 4868061-3 (Version None)
Quarter: 2005Q4

REPORT INFORMATION
  Report Type: 
  Country: None (occurrence: None)
  Receive Date: 20051221
  Receipt Date: 20051208
  Transmission Date: 20060501
  Serious: Yes (Other)
  Sender: FDA-Public Use
  Company Number: HQWYE936312DEC05

PATIENT
  Age: 58 Year
  Sex: Male
  Weight: 72.64 kg

DRUGS (2)
  1. PROGRAF [Suspect]
     Indication: PROPHYLAXIS AGAINST TRANSPLANT REJECTION
     Dosage: 2.5 MG 2X PER 1 DAY ORAL; 4 MG 2X PER 1 DAY ORAL
     Route: 048
     Dates: end: 20051201
  2. PROGRAF [Suspect]
     Indication: PROPHYLAXIS AGAINST TRANSPLANT REJECTION
     Dosage: 2.5 MG 2X PER 1 DAY ORAL; 4 MG 2X PER 1 DAY ORAL
     Route: 048
     Dates: start: 20051201

REACTIONS (1)
  - KIDNEY TRANSPLANT REJECTION [None]
